FAERS Safety Report 5450839-9 (Version None)
Quarter: 2007Q3

REPORT INFORMATION
  Report Type: 
  Country: None (occurrence: None)
  Receive Date: 20070913
  Receipt Date: 20070910
  Transmission Date: 20080115
  Serious: Yes (Death, Other)
  Sender: FDA-Public Use
  Company Number: PHEH2007US11825

PATIENT
  Sex: Male

DRUGS (1)
  1. SANDOSTATIN LAR [Suspect]

REACTIONS (3)
  - INTESTINAL OBSTRUCTION [None]
  - INTESTINAL OPERATION [None]
  - INTESTINAL PERFORATION [None]
